FAERS Safety Report 8945082 (Version 1)
Quarter: 2012Q4

REPORT INFORMATION
  Report Type: 
  Country: US (occurrence: US)
  Receive Date: 20121204
  Receipt Date: 20121204
  Transmission Date: 20130627
  Serious: No
  Sender: FDA-Public Use
  Company Number: US-AMGEN-USASP2012067380

PATIENT
  Age: 56 Year
  Sex: Male

DRUGS (3)
  1. ENBREL [Suspect]
     Indication: PSORIASIS
     Dosage: 50 mg, qwk
     Dates: start: 20100623, end: 201010
  2. ENBREL [Suspect]
     Indication: ARTHRITIS
  3. HUMIRA [Concomitant]
     Dosage: UNK

REACTIONS (7)
  - Meniscus injury [Recovered/Resolved]
  - Procedural pain [Not Recovered/Not Resolved]
  - Mobility decreased [Not Recovered/Not Resolved]
  - Tooth disorder [Unknown]
  - Dental caries [Unknown]
  - Arthralgia [Not Recovered/Not Resolved]
  - Psoriasis [Not Recovered/Not Resolved]
